FAERS Safety Report 6780265-1 (Version None)
Quarter: 2010Q2

REPORT INFORMATION
  Report Type: 
  Country: None (occurrence: None)
  Receive Date: 20100618
  Receipt Date: 20100618
  Transmission Date: 20101027
  Serious: Yes (Death, Other)
  Sender: FDA-Public Use
  Company Number: CA-ABBOTT-09P-028-0585702-00

PATIENT
  Sex: Male

DRUGS (6)
  1. LUPRON DEPOT [Suspect]
     Indication: PROSTATE CANCER
     Dates: start: 19960316, end: 20100302
  2. APO-QUINIDINE [Concomitant]
     Indication: DRUG USE FOR UNKNOWN INDICATION
  3. APO-TRIAZIDE [Concomitant]
     Indication: DRUG USE FOR UNKNOWN INDICATION
  4. NORVASEN [Concomitant]
     Indication: DRUG USE FOR UNKNOWN INDICATION
  5. RATIO-CITALOPRAM [Concomitant]
     Indication: DRUG USE FOR UNKNOWN INDICATION
     Dosage: 1/2 TAB
  6. CARBOCAL [Concomitant]
     Indication: DRUG USE FOR UNKNOWN INDICATION

REACTIONS (2)
  - PROSTATE CANCER [None]
  - PROSTATIC SPECIFIC ANTIGEN INCREASED [None]
